FAERS Safety Report 11758294 (Version 1)
Quarter: 2015Q4

REPORT INFORMATION
  Report Type: Spontaneous
  Country: US (occurrence: None)
  Receive Date: 20151118
  Receipt Date: 20151118
  Transmission Date: 20160304
  Serious: Yes (Disabling, Other)
  Sender: FDA-Public Use
  Company Number: None

PATIENT
  Age: 24 Year
  Sex: Female
  Weight: 56.7 kg

DRUGS (8)
  1. GENERIC SUBOXONE TABLETS NOT LISTED ON PRESCRIPTION BOTTLE 8/2MG [Suspect]
     Active Substance: BUPRENORPHINE HYDROCHLORIDE\NALOXONE HYDROCHLORIDE
     Indication: DRUG DEPENDENCE
     Dosage: 12 MG TWICE A DAY, 20MG/DAY ONCE DAILY TAKEN UNDER THE TONGUE
     Route: 060
     Dates: start: 20151113, end: 20151116
  2. IBUPROFEN. [Concomitant]
     Active Substance: IBUPROFEN
  3. RISPERIDONE. [Concomitant]
     Active Substance: RISPERIDONE
  4. PROMETHAZINE [Concomitant]
     Active Substance: PROMETHAZINE\PROMETHAZINE HYDROCHLORIDE
  5. TYLENOL [Concomitant]
     Active Substance: ACETAMINOPHEN
  6. OXCARBAZEPINE. [Concomitant]
     Active Substance: OXCARBAZEPINE
  7. BUPROPION. [Concomitant]
     Active Substance: BUPROPION
  8. PROPRANOLOL [Concomitant]
     Active Substance: PROPRANOLOL\PROPRANOLOL HYDROCHLORIDE

REACTIONS (6)
  - Nausea [None]
  - Cold sweat [None]
  - Bone pain [None]
  - Myalgia [None]
  - Anxiety [None]
  - Drug withdrawal syndrome [None]

NARRATIVE: CASE EVENT DATE: 20151113
